FAERS Safety Report 16072832 (Version 1)
Quarter: 2019Q1

REPORT INFORMATION
  Report Type: Report from Study
  Country: IT (occurrence: IT)
  Receive Date: 20190314
  Receipt Date: 20190314
  Transmission Date: 20190418
  Serious: Yes (Hospitalization)
  Sender: FDA-Public Use
  Company Number: IT-PFIZER INC-2019106802

PATIENT
  Age: 25 Year
  Sex: Female

DRUGS (3)
  1. EN [Suspect]
     Active Substance: DELORAZEPAM
     Dosage: 40 MG, SINGLE
     Route: 048
     Dates: start: 20181219, end: 20181219
  2. LORAZEPAM. [Suspect]
     Active Substance: LORAZEPAM
     Dosage: 20 MG, SINGLE
     Route: 048
     Dates: start: 20181219, end: 20181219
  3. CIPRALEX [Suspect]
     Active Substance: ESCITALOPRAM OXALATE
     Dosage: 300 MG, SINGLE
     Route: 048
     Dates: start: 20181219, end: 20181219

REACTIONS (5)
  - Chest discomfort [Recovering/Resolving]
  - Intentional overdose [Recovered/Resolved]
  - Dry mouth [Recovering/Resolving]
  - Drug abuse [Recovering/Resolving]
  - Slow speech [Recovering/Resolving]

NARRATIVE: CASE EVENT DATE: 20181219
